FAERS Safety Report 19738592 (Version 1)
Quarter: 2021Q3

REPORT INFORMATION
  Report Type: Report from Study
  Country: PT (occurrence: PT)
  Receive Date: 20210823
  Receipt Date: 20210823
  Transmission Date: 20211014
  Serious: Yes (Hospitalization)
  Sender: FDA-Public Use
  Company Number: PT-MYLANLABS-2019M1057078

PATIENT
  Age: 65 Year
  Sex: Female
  Weight: 87 kg

DRUGS (26)
  1. TRASTUZUMAB. [Suspect]
     Active Substance: TRASTUZUMAB
     Indication: BREAST CANCER
     Dosage: 600 MILLIGRAM, Q3W
     Route: 042
     Dates: start: 20171024, end: 20180823
  2. LISINOPRIL                         /00894002/ [Concomitant]
     Active Substance: LISINOPRIL
     Dosage: ONGOING = CHECKED
     Route: 065
  3. DENOSUMAB [Suspect]
     Active Substance: DENOSUMAB
     Indication: BREAST CANCER
     Dosage: 120 MILLIGRAM, 3XW
     Route: 058
     Dates: start: 20180509
  4. FORMOTEROL [Concomitant]
     Active Substance: FORMOTEROL
     Dosage: ONGOING = CHECKED
     Route: 065
  5. ENOXAPARIN [Concomitant]
     Active Substance: ENOXAPARIN
     Dosage: ONGOING = CHECKED
     Route: 065
  6. THIOCOLCHICOSIDE [Concomitant]
     Active Substance: THIOCOLCHICOSIDE
     Dosage: ONGOING CHECKED
     Route: 065
     Dates: start: 20180706
  7. LOPERAMIDE [Concomitant]
     Active Substance: LOPERAMIDE
     Dosage: ONGOING = NOT CHECKED
     Route: 065
     Dates: start: 20180104
  8. PARACETAMOL [Concomitant]
     Active Substance: ACETAMINOPHEN
     Dosage: ONGOING = CHECKED
     Route: 065
     Dates: start: 20180108
  9. PARACETAMOL [Concomitant]
     Active Substance: ACETAMINOPHEN
     Dosage: ONGOING CHECKED
     Route: 065
  10. NAPROXENO                          /00256201/ [Concomitant]
     Active Substance: NAPROXEN
     Dosage: ONGOING = CHECKED
     Route: 065
     Dates: start: 20180706
  11. METFORMIN [Concomitant]
     Active Substance: METFORMIN HYDROCHLORIDE
     Dosage: ONGOING = CHECKED
     Route: 065
  12. BUDESONIDE. [Concomitant]
     Active Substance: BUDESONIDE
     Dosage: ONGOING = CHECKED
     Route: 065
  13. ZOLPIDEM [Concomitant]
     Active Substance: ZOLPIDEM TARTRATE
     Dosage: ONGOING = CHECKED
     Route: 065
  14. BILASTINE [Concomitant]
     Active Substance: BILASTINE
     Dosage: ONGOING = CHECKED
     Route: 065
  15. MORFINE [Concomitant]
     Active Substance: MORPHINE
     Dosage: ONGOING = CHECKED
     Route: 065
  16. DOCETAXEL. [Suspect]
     Active Substance: DOCETAXEL
     Indication: BREAST CANCER
     Dosage: 1 DOSAGE FORM, Q3W
     Route: 042
     Dates: start: 20171024, end: 20180130
  17. THIOCOLCHICOSIDE [Concomitant]
     Active Substance: THIOCOLCHICOSIDE
     Dosage: ONGOING = CHECKED
     Route: 065
     Dates: start: 20180108
  18. ROSUVASTATIN. [Concomitant]
     Active Substance: ROSUVASTATIN
     Dosage: ONGOING = CHECKED
     Route: 065
  19. FEMARA [Suspect]
     Active Substance: LETROZOLE
     Indication: BREAST CANCER
     Dosage: 2.5 MILLIGRAM, QD
     Route: 048
     Dates: start: 20180417, end: 20180906
  20. OMEPRAZOL                          /00661201/ [Concomitant]
     Active Substance: OMEPRAZOLE
     Dosage: ONGOING = CHECKED
     Route: 065
  21. ESCITALOPRAM [Concomitant]
     Active Substance: ESCITALOPRAM OXALATE
     Dosage: ONGOING = CHECKED
     Route: 065
  22. LETROZOLE. [Suspect]
     Active Substance: LETROZOLE
     Dosage: 2.5 MILLIGRAM
     Route: 048
     Dates: start: 20180417, end: 20180906
  23. PERTUZUMAB. [Suspect]
     Active Substance: PERTUZUMAB
     Indication: BREAST CANCER
     Dosage: 1 UNK, Q3W
     Route: 042
     Dates: start: 20171024, end: 20180130
  24. MONTELUKAST [Concomitant]
     Active Substance: MONTELUKAST SODIUM
     Dosage: UNK
     Route: 065
  25. NEUTRAL INSULIN                    /00030501/ [Concomitant]
     Dosage: ONGOING = CHECKED
     Route: 065
  26. DIAZEPAM. [Concomitant]
     Active Substance: DIAZEPAM
     Dosage: ONGOING = CHECKED
     Route: 065

REACTIONS (1)
  - Pyelonephritis [Recovered/Resolved]

NARRATIVE: CASE EVENT DATE: 20180714
